FAERS Safety Report 9324583 (Version 2)
Quarter: 2013Q3

REPORT INFORMATION
  Report Type: Spontaneous
  Country: AU (occurrence: AU)
  Receive Date: 20130603
  Receipt Date: 20130722
  Transmission Date: 20140515
  Serious: No
  Sender: FDA-Public Use
  Company Number: AU-BAYER-2013-064635

PATIENT
  Sex: Female

DRUGS (1)
  1. CANESTEN 1% CREAM - 6 DAY CREAM WITH 2% BA [Suspect]
     Dosage: UNK
     Dates: start: 201304

REACTIONS (3)
  - Vulvovaginal candidiasis [None]
  - Drug ineffective [None]
  - Exposure during pregnancy [None]
